FAERS Safety Report 19927079 (Version 2)
Quarter: 2022Q2

REPORT INFORMATION
  Report Type: Report from Study
  Country: US (occurrence: US)
  Receive Date: 20211006
  Receipt Date: 20220423
  Transmission Date: 20220721
  Serious: Yes (Hospitalization, Other)
  Sender: FDA-Public Use
  Company Number: US-ABBVIE-21K-163-4009318-00

PATIENT
  Age: 63 Year
  Sex: Male

DRUGS (3)
  1. IMBRUVICA [Suspect]
     Active Substance: IBRUTINIB
     Indication: Chronic lymphocytic leukaemia
     Route: 048
     Dates: start: 201912
  2. IMBRUVICA [Suspect]
     Active Substance: IBRUTINIB
     Indication: Lymphocytic leukaemia
     Route: 048
     Dates: start: 20191218, end: 202108
  3. IMBRUVICA [Suspect]
     Active Substance: IBRUTINIB
     Route: 048
     Dates: start: 20191218

REACTIONS (12)
  - Jaundice [Unknown]
  - Biliary obstruction [Unknown]
  - Pancreatic carcinoma [Unknown]
  - Blood glucose abnormal [Unknown]
  - Diabetes mellitus [Unknown]
  - Hiccups [Unknown]
  - Temperature intolerance [Unknown]
  - Hepatic enzyme increased [Unknown]
  - Urticaria [Unknown]
  - Weight decreased [Unknown]
  - Pruritus [Unknown]
  - Neuropathy peripheral [Unknown]

NARRATIVE: CASE EVENT DATE: 20210301
